FAERS Safety Report 8841362 (Version 4)
Quarter: 2012Q4

REPORT INFORMATION
  Report Type: 
  Country: US (occurrence: US)
  Receive Date: 20121015
  Receipt Date: 20121116
  Transmission Date: 20130627
  Serious: Yes (Other)
  Sender: FDA-Public Use
  Company Number: US-VERTEX PHARMACEUTICAL INC.-2012-022700

PATIENT
  Age: 58 Year
  Sex: Male

DRUGS (11)
  1. INCIVEK [Suspect]
     Indication: HEPATITIS C
     Dosage: 750 mg, tid
     Route: 048
     Dates: start: 20120615
  2. INCIVEK [Suspect]
     Dosage: UNK
  3. PEGINTERFERON ALFA-2A [Suspect]
     Indication: HEPATITIS C
     Dosage: 180 ?g,weekly
     Route: 058
     Dates: start: 20120424, end: 20120906
  4. RIBAVIRIN [Suspect]
     Indication: HEPATITIS C
     Dosage: 1000 mg, qd
     Dates: start: 20120424, end: 20120906
  5. LASIX                              /00032601/ [Concomitant]
     Dosage: 40 UNK, qd
  6. INDERAL [Concomitant]
     Dosage: 20 mg, bid
  7. ALDACTONE                          /00006201/ [Concomitant]
     Dosage: 100 UNK, qd
  8. MULTIVITAMIN                       /00097801/ [Concomitant]
     Dosage: UNK, qd
  9. SEROQUEL [Concomitant]
     Dosage: 25 mg, qd
  10. ALLOPURINOL [Concomitant]
  11. LEXAPRO [Concomitant]
     Dosage: 20 mg, qd

REACTIONS (4)
  - Hepatic cirrhosis [Recovered/Resolved]
  - Anaemia [Recovered/Resolved]
  - Neutropenia [Unknown]
  - Platelet count decreased [Recovered/Resolved]
